FAERS Safety Report 11233995 (Version 1)
Quarter: 2015Q3

REPORT INFORMATION
  Report Type: Spontaneous
  Country: GB (occurrence: GB)
  Receive Date: 20150702
  Receipt Date: 20150702
  Transmission Date: 20151125
  Serious: Yes (Other)
  Sender: FDA-Public Use
  Company Number: GB-AUROBINDO-AUR-APL-2015-05561

PATIENT
  Age: 61 Year
  Sex: Male

DRUGS (3)
  1. SODIUM VALPROATE [Concomitant]
     Active Substance: VALPROATE SODIUM
     Indication: PRODUCT USED FOR UNKNOWN INDICATION
     Route: 065
  2. QUETIAPINE [Suspect]
     Active Substance: QUETIAPINE
     Indication: PRODUCT USED FOR UNKNOWN INDICATION
     Route: 065
  3. LAMOTRIGINE. [Concomitant]
     Active Substance: LAMOTRIGINE
     Indication: PRODUCT USED FOR UNKNOWN INDICATION
     Route: 065

REACTIONS (7)
  - Granuloma [Recovered/Resolved]
  - Nodule [Recovered/Resolved]
  - Angiotensin converting enzyme increased [Unknown]
  - Erythema [Recovered/Resolved]
  - Skin plaque [Recovered/Resolved]
  - Rash [Recovered/Resolved]
  - Papule [Recovered/Resolved]
